FAERS Safety Report 22243253 (Version 1)
Quarter: 2023Q2

REPORT INFORMATION
  Report Type: Spontaneous
  Country: US (occurrence: US)
  Receive Date: 20230424
  Receipt Date: 20230424
  Transmission Date: 20230722
  Serious: Yes (Other)
  Sender: FDA-Public Use
  Company Number: US-SA-SAC20230421000669

PATIENT
  Sex: Male

DRUGS (1)
  1. DUPIXENT [Suspect]
     Active Substance: DUPILUMAB
     Dosage: 300 MG; OTHER
     Route: 058

REACTIONS (5)
  - Renal impairment [Not Recovered/Not Resolved]
  - Injection site mass [Recovered/Resolved]
  - Injection site pain [Recovered/Resolved]
  - Injection site bruising [Unknown]
  - Inappropriate schedule of product administration [Unknown]
